FAERS Safety Report 6347012-9 (Version None)
Quarter: 2009Q3

REPORT INFORMATION
  Report Type: 
  Country: None (occurrence: None)
  Receive Date: 20090909
  Receipt Date: 20090909
  Transmission Date: 20100115
  Serious: Yes (Other)
  Sender: FDA-Public Use
  Company Number: None

PATIENT
  Age: 46 Year
  Sex: Female
  Weight: 71.2147 kg

DRUGS (1)
  1. LISINOPRIL 5MG DON'T HAVE WITH ME [Suspect]
     Indication: HYPERTENSION
     Dosage: 1 PER DAY
     Dates: start: 20090905, end: 20090907

REACTIONS (11)
  - ANXIETY [None]
  - APHASIA [None]
  - BLOOD PRESSURE DECREASED [None]
  - CONFUSIONAL STATE [None]
  - DISORIENTATION [None]
  - DIZZINESS [None]
  - GAIT DISTURBANCE [None]
  - HEADACHE [None]
  - HYPERSOMNIA [None]
  - PAIN IN EXTREMITY [None]
  - TREMOR [None]
